FAERS Safety Report 17192103 (Version 1)
Quarter: 2019Q4

REPORT INFORMATION
  Report Type: Spontaneous
  Country: US (occurrence: US)
  Receive Date: 20191223
  Receipt Date: 20191223
  Transmission Date: 20200122
  Serious: Yes (Other)
  Sender: FDA-Public Use
  Company Number: US-PFIZER INC-2019479195

PATIENT
  Age: 64 Year
  Sex: Female
  Weight: 70.3 kg

DRUGS (20)
  1. VITAMIN D3 [Concomitant]
     Active Substance: CHOLECALCIFEROL
     Dosage: 1000 IU, DAILY
  2. FIBERCON [Suspect]
     Active Substance: CALCIUM POLYCARBOPHIL
     Dosage: 2 DF, DAILY
     Dates: start: 2013, end: 201910
  3. PRIMROSE OIL [Concomitant]
     Dosage: 500 MG, DAILY
  4. EPIPEN [Concomitant]
     Active Substance: EPINEPHRINE
     Dosage: UNK, DAILY
  5. MOVE FREE [CHONDROITIN SULFATE;GLUCOSAMINE] [Concomitant]
     Dosage: UNK, DAILY [GUMMIES 1 A DAY]
  6. ASPIRIN 81 [Concomitant]
     Active Substance: ASPIRIN
     Dosage: UNK UNK, DAILY
  7. VITAMIN B12 [Concomitant]
     Active Substance: CYANOCOBALAMIN
     Dosage: 2000 UG, DAILY
  8. FIBERCON [Suspect]
     Active Substance: CALCIUM POLYCARBOPHIL
     Indication: CONSTIPATION
     Dosage: 4 DF, DAILY
     Dates: start: 201012
  9. RESVERATROL [Concomitant]
     Active Substance: DIETARY SUPPLEMENT\RESVERATROL
     Dosage: 500 MG, DAILY
     Dates: start: 201406
  10. NITROGLYCERIN. [Concomitant]
     Active Substance: NITROGLYCERIN
     Dosage: 0.4 MG, AS NEEDED (ONLY TAKEN IF NEEDED)
  11. ENALAPRIL [Concomitant]
     Active Substance: ENALAPRIL
     Indication: BLOOD PRESSURE MEASUREMENT
     Dosage: 2.5 MG, DAILY
  12. BENADRYL [Concomitant]
     Active Substance: DIPHENHYDRAMINE HYDROCHLORIDE
     Dosage: UNK, DAILY
  13. BLACK COHOSH EXTRACT [Concomitant]
     Dosage: 540 MG, DAILY
  14. OMEGA 3 FISH OIL [FISH OIL] [Concomitant]
     Dosage: 2400 MG, DAILY (2 SOFTGELS)
  15. MAGNESIUM [Concomitant]
     Active Substance: MAGNESIUM
     Dosage: 250 MG, DAILY
  16. MILK THISTLE [Concomitant]
     Active Substance: DIETARY SUPPLEMENT\HERBALS\MILK THISTLE
     Dosage: 175 MG, DAILY
  17. CRANBERRY. [Concomitant]
     Active Substance: CRANBERRY
     Dosage: 450 MG, UNK
  18. CALCIUM VITAMIN D [Concomitant]
     Active Substance: CALCIUM\VITAMIN D
     Dosage: 600 MG, DAILY
  19. ZINC. [Concomitant]
     Active Substance: ZINC
     Dosage: 50 MG, DAILY
  20. FLAXSEED OIL NATURE MADE [Concomitant]
     Dosage: 1000 MG, DAILY

REACTIONS (11)
  - Hyperhidrosis [Unknown]
  - Immunodeficiency [Unknown]
  - Temperature intolerance [Unknown]
  - Palpitations [Unknown]
  - Glucose tolerance impaired [Not Recovered/Not Resolved]
  - Blood cholesterol increased [Not Recovered/Not Resolved]
  - Emphysema [Unknown]
  - Drug ineffective [Recovered/Resolved]
  - Incorrect product administration duration [Unknown]
  - Thyrotoxic crisis [Unknown]
  - Panic attack [Unknown]

NARRATIVE: CASE EVENT DATE: 201012
